FAERS Safety Report 7730770-6 (Version None)
Quarter: 2011Q3

REPORT INFORMATION
  Report Type: 
  Country: None (occurrence: None)
  Receive Date: 20110906
  Receipt Date: 20110817
  Transmission Date: 20111222
  Serious: Yes (Disabling)
  Sender: FDA-Public Use
  Company Number: DE-GLAXOSMITHKLINE-D0072421A

PATIENT
  Sex: Male
  Weight: 76 kg

DRUGS (1)
  1. ACYCLOVIR [Suspect]
     Indication: GENITAL HERPES
     Dosage: 400MG FOUR TIMES PER DAY
     Route: 048
     Dates: start: 20100701

REACTIONS (4)
  - MUCOUS STOOLS [None]
  - COLONIC POLYP [None]
  - ALOPECIA [None]
  - IRRITABLE BOWEL SYNDROME [None]
